FAERS Safety Report 7128163-8 (Version None)
Quarter: 2010Q4

REPORT INFORMATION
  Report Type: 
  Country: None (occurrence: None)
  Receive Date: 20101130
  Receipt Date: 20101119
  Transmission Date: 20110411
  Serious: Yes (Hospitalization, Other)
  Sender: FDA-Public Use
  Company Number: FR-NOVOPROD-316347

PATIENT
  Age: 69 Year
  Sex: Male
  Weight: 178 kg

DRUGS (11)
  1. VICTOZA [Suspect]
     Indication: TYPE 2 DIABETES MELLITUS
     Dosage: 0.6 MG, QD
     Route: 058
     Dates: start: 20100101, end: 20100606
  2. VICTOZA [Suspect]
     Dosage: 1.2 MG, QD
     Route: 058
     Dates: start: 20100607, end: 20100927
  3. VICTOZA [Suspect]
     Dosage: 0.6 MG, QD
     Route: 058
     Dates: start: 20100928
  4. NOVONORM [Concomitant]
     Indication: TYPE 2 DIABETES MELLITUS
     Dosage: 6 MG, QD
     Route: 048
     Dates: start: 20090101
  5. PLAVIX [Concomitant]
     Dosage: UNK
  6. KARDEGIC                           /00002703/ [Concomitant]
     Dosage: 160 MG, QD
     Route: 048
     Dates: start: 20080101
  7. AMLODIPINE [Concomitant]
  8. TAHOR [Concomitant]
     Dosage: 80 MG, QD
     Route: 048
     Dates: start: 20090101
  9. RAMIPRIL [Concomitant]
     Dosage: 10 MG, QD
     Route: 048
     Dates: start: 20080101
  10. ATENOLOL [Concomitant]
     Dosage: UNK
     Route: 048
     Dates: start: 20080101
  11. GLUCOPHAGE [Concomitant]
     Indication: TYPE 2 DIABETES MELLITUS
     Dosage: 3000 MG, QD
     Route: 048
     Dates: start: 20090101

REACTIONS (4)
  - FALL [None]
  - ILL-DEFINED DISORDER [None]
  - MALAISE [None]
  - PRESYNCOPE [None]
